FAERS Safety Report 5987581-1 (Version None)
Quarter: 2008Q4

REPORT INFORMATION
  Report Type: 
  Country: None (occurrence: None)
  Receive Date: 20081209
  Receipt Date: 20081127
  Transmission Date: 20090506
  Serious: Yes (Hospitalization)
  Sender: FDA-Public Use
  Company Number: DE-WYE-H07002308

PATIENT
  Sex: Female
  Weight: 50 kg

DRUGS (7)
  1. RAPAMUNE [Suspect]
     Indication: PROPHYLAXIS AGAINST TRANSPLANT REJECTION
     Dates: start: 20080115, end: 20080317
  2. PREDNISONE TAB [Concomitant]
     Indication: IMMUNOSUPPRESSANT DRUG THERAPY
     Dosage: ^2.5-0-0^
  3. H-BIG [Concomitant]
     Indication: HEPATITIS B
     Dosage: UNSPECIFIED
  4. ESTRADIOL [Concomitant]
  5. LAMIVUDINE [Concomitant]
     Indication: HEPATITIS B
     Dosage: 100 MG, ^1-0-0^
  6. CYCLOSPORINE [Concomitant]
     Indication: IMMUNOSUPPRESSANT DRUG THERAPY
     Dosage: ^125-0-125^
  7. NEXIUM [Concomitant]
     Indication: PROPHYLAXIS AGAINST GASTROINTESTINAL ULCER
     Dosage: 40 MG, ^1-0-0^

REACTIONS (1)
  - PRURITUS [None]
